FAERS Safety Report 18849206 (Version 2)
Quarter: 2022Q1

REPORT INFORMATION
  Report Type: Spontaneous
  Country: IN (occurrence: IN)
  Receive Date: 20210205
  Receipt Date: 20220216
  Transmission Date: 20220423
  Serious: No
  Sender: FDA-Public Use
  Company Number: IN-SUN PHARMACEUTICAL INDUSTRIES LTD-2021R1-277370

PATIENT
  Sex: Female

DRUGS (5)
  1. FENTANYL [Suspect]
     Active Substance: FENTANYL
     Indication: Product used for unknown indication
     Dosage: UNK
     Route: 065
  2. IVABRADINE [Suspect]
     Active Substance: IVABRADINE
     Indication: Heart rate
     Dosage: 5 MG
     Route: 065
  3. BUDESONIDE [Suspect]
     Active Substance: BUDESONIDE
     Indication: Wheezing
     Dosage: NEBULIZATION
     Route: 065
  4. FUROSEMIDE [Suspect]
     Active Substance: FUROSEMIDE
     Indication: Preoperative care
     Dosage: UNK
     Route: 065
  5. LEVALBUTEROL [Suspect]
     Active Substance: LEVALBUTEROL
     Indication: Wheezing
     Dosage: NEBULIZATION
     Route: 065

REACTIONS (1)
  - No adverse event [Unknown]
